FAERS Safety Report 16763265 (Version 2)
Quarter: 2019Q3

REPORT INFORMATION
  Report Type: Spontaneous
  Country: CA (occurrence: CA)
  Receive Date: 20190902
  Receipt Date: 20190918
  Transmission Date: 20191005
  Serious: Yes (Hospitalization)
  Sender: FDA-Public Use
  Company Number: CA-JNJFOC-20190832010

PATIENT
  Sex: Male

DRUGS (17)
  1. APO-PREDNISONE [Concomitant]
     Active Substance: PREDNISONE
  2. INFLECTRA [Concomitant]
     Active Substance: INFLIXIMAB-DYYB
     Indication: CROHN^S DISEASE
     Dosage: ONCE EVERY 0, 2, 6 WEEKS, THEN EVERY 8 WEEKS
     Route: 042
  3. ATIVAN [Concomitant]
     Active Substance: LORAZEPAM
     Route: 060
  4. CALCIUM [Concomitant]
     Active Substance: CALCIUM
  5. CAL D                              /00944201/ [Concomitant]
     Active Substance: CALCIUM CARBONATE\CHOLECALCIFEROL
     Dosage: 500 MG + 400 UI
  6. DIAZEPAM. [Concomitant]
     Active Substance: DIAZEPAM
     Dosage: BEDTIME AS NEEDED
  7. MACROGOL [Concomitant]
     Active Substance: POLYETHYLENE GLYCOLS
  8. STELARA [Suspect]
     Active Substance: USTEKINUMAB
     Indication: CROHN^S DISEASE
     Route: 058
     Dates: start: 201808, end: 201908
  9. ASA [Concomitant]
     Active Substance: ASPIRIN
  10. AVAMYS [Concomitant]
     Active Substance: FLUTICASONE FUROATE
  11. PMS FERROUS SULFATE [Concomitant]
  12. PURINETHOL [Suspect]
     Active Substance: MERCAPTOPURINE
     Indication: PRODUCT USED FOR UNKNOWN INDICATION
     Dates: start: 201808
  13. APO LORAZEPAM [Concomitant]
     Active Substance: LORAZEPAM
     Dosage: AS NEEDED
  14. RIVASA [Concomitant]
     Active Substance: ASPIRIN
  15. DOXYCIN                            /00055701/ [Concomitant]
     Active Substance: DOXYCYCLINE
  16. ROSUVASTATINA TEVA [Concomitant]
  17. JAMP-PANTOPRAZOLE [Concomitant]

REACTIONS (5)
  - Crohn^s disease [Unknown]
  - Product use issue [Unknown]
  - Stenosis [Unknown]
  - Drug ineffective [Unknown]
  - Off label use [Unknown]
